FAERS Safety Report 15457609 (Version 1)
Quarter: 2018Q4

REPORT INFORMATION
  Report Type: Spontaneous
  Country: ES (occurrence: ES)
  Receive Date: 20181003
  Receipt Date: 20181003
  Transmission Date: 20190204
  Serious: Yes (Other)
  Sender: FDA-Public Use
  Company Number: ES-AMGEN-ESPSP2018134070

PATIENT
  Age: 65 Year
  Sex: Female

DRUGS (1)
  1. PROLIA [Suspect]
     Active Substance: DENOSUMAB
     Indication: OSTEOPOROSIS
     Dosage: UNK
     Route: 065
     Dates: start: 201703

REACTIONS (3)
  - Therapy non-responder [Unknown]
  - Thyroid cyst [Unknown]
  - Hyperparathyroidism primary [Not Recovered/Not Resolved]

NARRATIVE: CASE EVENT DATE: 2018
